FAERS Safety Report 8321647-6 (Version None)
Quarter: 2012Q2

REPORT INFORMATION
  Report Type: 
  Country: None (occurrence: None)
  Receive Date: 20120430
  Receipt Date: 20120424
  Transmission Date: 20120825
  Serious: Yes (Hospitalization)
  Sender: FDA-Public Use
  Company Number: US-BAYER-2012-041624

PATIENT
  Age: 73 Year
  Sex: Female

DRUGS (2)
  1. BETAPACE AF [Suspect]
     Dosage: 120 MG, BID
     Route: 048
     Dates: start: 20120401
  2. BETAPACE AF [Suspect]
     Indication: ATRIAL FIBRILLATION
     Dosage: 80 MG, BID
     Route: 048
     Dates: start: 20020101, end: 20120401

REACTIONS (3)
  - ATRIAL FLUTTER [None]
  - DYSPNOEA [None]
  - MUSCULAR WEAKNESS [None]
